FAERS Safety Report 8500466-1 (Version None)
Quarter: 2012Q3

REPORT INFORMATION
  Report Type: 
  Country: None (occurrence: None)
  Receive Date: 20120710
  Receipt Date: 20120626
  Transmission Date: 20120928
  Serious: Yes (Other)
  Sender: FDA-Public Use
  Company Number: JP-GLAXOSMITHKLINE-B0813627A

PATIENT
  Age: 71 Year
  Sex: Female

DRUGS (1)
  1. HYCAMTIN [Suspect]
     Indication: OVARIAN CANCER
     Dosage: 1.2MGM2 PER DAY
     Route: 042
     Dates: start: 20120604, end: 20120608

REACTIONS (1)
  - CHOLESTASIS [None]
